FAERS Safety Report 8355779-3 (Version None)
Quarter: 2012Q2

REPORT INFORMATION
  Report Type: 
  Country: None (occurrence: None)
  Receive Date: 20120514
  Receipt Date: 20120508
  Transmission Date: 20120825
  Serious: No
  Sender: FDA-Public Use
  Company Number: US-PFIZER INC-2012112189

PATIENT
  Sex: Female

DRUGS (8)
  1. DETROL LA [Suspect]
     Indication: URINARY INCONTINENCE
     Dosage: 4 MG, DAILY
  2. TOLTERODINE TARTRATE [Suspect]
     Indication: URINARY INCONTINENCE
     Dosage: 4 MG, DAILY
     Dates: start: 20120322
  3. ALPRAZOLAM [Concomitant]
     Indication: SLEEP DISORDER
     Dosage: 0.25 MG, DAILY
  4. LISINOPRIL [Concomitant]
     Dosage: 5 MG, DAILY
  5. ALPRAZOLAM [Concomitant]
     Indication: ANXIETY
  6. OMEPRAZOLE [Concomitant]
     Dosage: 20 MG, UNK
  7. SOTALOL [Concomitant]
     Indication: ATRIAL FIBRILLATION
     Dosage: SPLITTING 80MG AND TAKE ONE HALF IN THE MORNING AND ONE HALF IN THE NIGHT TWO TIMES A DAY
  8. WARFARIN [Concomitant]
     Dosage: 2 MG,DAILY

REACTIONS (1)
  - DRUG INEFFECTIVE [None]
